FAERS Safety Report 23486433 (Version 1)
Quarter: 2024Q1

REPORT INFORMATION
  Report Type: Spontaneous
  Country: US (occurrence: None)
  Receive Date: 20240205
  Receipt Date: 20240205
  Transmission Date: 20240409
  Serious: Yes (unspecified)
  Sender: FDA-Public Use
  Company Number: None

PATIENT
  Age: 86 Year
  Sex: Female

DRUGS (1)
  1. CAPECITABINE [Suspect]
     Active Substance: CAPECITABINE
     Indication: Neoplasm malignant
     Dosage: OTHER QUANTITY : 2 TABLETS;?FREQUENCY : TWICE A DAY;?
     Route: 048

REACTIONS (4)
  - Constipation [None]
  - Hypoaesthesia [None]
  - Paraesthesia [None]
  - Therapy interrupted [None]
